FAERS Safety Report 13586407 (Version 5)
Quarter: 2018Q3

REPORT INFORMATION
  Report Type: Report from Study
  Country: IT (occurrence: IT)
  Receive Date: 20170526
  Receipt Date: 20180814
  Transmission Date: 20181010
  Serious: Yes (Other)
  Sender: FDA-Public Use
  Company Number: IT-TEVA-771035ACC

PATIENT
  Age: 18 Year
  Sex: Female

DRUGS (6)
  1. DUFASTON ? BGP PRODUCTS B.V. [Suspect]
     Active Substance: DYDROGESTERONE
     Indication: INTENTIONAL SELF-INJURY
     Route: 048
     Dates: start: 20170501, end: 20170501
  2. CELECOXIB. [Suspect]
     Active Substance: CELECOXIB
     Indication: INTENTIONAL SELF-INJURY
     Route: 048
     Dates: start: 20170501, end: 20170501
  3. FLUCONAZOLE. [Suspect]
     Active Substance: FLUCONAZOLE
     Indication: INTENTIONAL SELF-INJURY
     Route: 048
     Dates: start: 20170501, end: 20170501
  4. DELTACORTENE ? BRUNO FARMACEUTICI S.P.A. [Suspect]
     Active Substance: PREDNISONE
     Indication: INTENTIONAL SELF-INJURY
     Route: 048
     Dates: start: 20170501, end: 20170501
  5. RAMIPRIL. [Suspect]
     Active Substance: RAMIPRIL
     Indication: INTENTIONAL SELF-INJURY
     Route: 048
     Dates: start: 20170501, end: 20170501
  6. KEPPRA [Suspect]
     Active Substance: LEVETIRACETAM
     Indication: INTENTIONAL SELF-INJURY
     Route: 048
     Dates: start: 20170501, end: 20170501

REACTIONS (4)
  - Drug abuse [Unknown]
  - Toxicity to various agents [Unknown]
  - Headache [Unknown]
  - Intentional self-injury [Unknown]

NARRATIVE: CASE EVENT DATE: 20170501
